FAERS Safety Report 21858670 (Version 1)
Quarter: 2023Q1

REPORT INFORMATION
  Report Type: Spontaneous
  Country: US (occurrence: None)
  Receive Date: 20230112
  Receipt Date: 20230112
  Transmission Date: 20230417
  Serious: Yes (Other)
  Sender: FDA-Public Use
  Company Number: None

PATIENT
  Sex: Female

DRUGS (10)
  1. GLATIRAMER [Suspect]
     Active Substance: GLATIRAMER
     Indication: Multiple sclerosis
     Dosage: 4O MG/ML SUBCUTANEOUS??INJECT 1 SYRINGE UNDER THE SKIN (SUBCUTANEOUS INJECTION) THREE TIMES PER WEEK
     Route: 058
     Dates: start: 20220209
  2. GLATIRAMER [Suspect]
     Active Substance: GLATIRAMER
     Dosage: OTHER QUANTITY : 1 SYRINGE;?FREQUENCY : AS DIRECTED;?
     Route: 058
  3. VITAMIN B12 [Concomitant]
     Active Substance: CYANOCOBALAMIN
  4. BAYER LOW CHW [Concomitant]
  5. BIOTIN [Concomitant]
     Active Substance: BIOTIN
  6. CLONAZEPAM [Concomitant]
     Active Substance: CLONAZEPAM
  7. VITAMIN D3 [Concomitant]
     Active Substance: CHOLECALCIFEROL
  8. TRAZODONE [Concomitant]
     Active Substance: TRAZODONE HYDROCHLORIDE
  9. TYLENOL [Concomitant]
     Active Substance: ACETAMINOPHEN
  10. VIT C IMMUNE WAF [Concomitant]

REACTIONS (1)
  - Chronic kidney disease [None]
